FAERS Safety Report 20815329 (Version 2)
Quarter: 2022Q2

REPORT INFORMATION
  Report Type: Spontaneous
  Country: MA (occurrence: MA)
  Receive Date: 20220511
  Receipt Date: 20220624
  Transmission Date: 20220720
  Serious: No
  Sender: FDA-Public Use
  Company Number: MA-PFIZER INC-202200629291

PATIENT
  Age: 11 Year
  Sex: Male

DRUGS (1)
  1. GENOTROPIN [Suspect]
     Active Substance: SOMATROPIN
     Dosage: 0.8 MG, DAILY
     Dates: start: 20210921

REACTIONS (3)
  - Device physical property issue [Not Recovered/Not Resolved]
  - Device use issue [Unknown]
  - Device breakage [Unknown]
